FAERS Safety Report 25131510 (Version 1)
Quarter: 2025Q1

REPORT INFORMATION
  Report Type: Spontaneous
  Country: US (occurrence: US)
  Receive Date: 20250327
  Receipt Date: 20250327
  Transmission Date: 20250409
  Serious: No
  Sender: SANOFI AVENTIS
  Company Number: US-SA-2025SA089947

PATIENT
  Age: 70 Year
  Sex: Male
  Weight: 84.09 kg

DRUGS (1)
  1. DUPIXENT [Suspect]
     Active Substance: DUPILUMAB
     Indication: Alpha-1 antitrypsin deficiency
     Dosage: 300 MG, QOW
     Route: 058

REACTIONS (4)
  - Tooth infection [Unknown]
  - Influenza [Unknown]
  - Hernia repair [Unknown]
  - Product use in unapproved indication [Unknown]

NARRATIVE: CASE EVENT DATE: 20250201
